FAERS Safety Report 6417350-X (Version None)
Quarter: 2009Q4

REPORT INFORMATION
  Report Type: 
  Country: None (occurrence: None)
  Receive Date: 20091027
  Receipt Date: 20091027
  Transmission Date: 20100525
  Serious: Yes (Hospitalization)
  Sender: FDA-Public Use
  Company Number: None

PATIENT
  Age: 19 Year
  Sex: Male

DRUGS (2)
  1. PEG ASPARAGINASE [Suspect]
     Indication: ADULT T-CELL LYMPHOMA/LEUKAEMIA
     Dosage: 2445 UNITS X8 DOSES IM
     Route: 030
     Dates: start: 20090624, end: 20090629
  2. METHOTREXATE LPF [Suspect]
     Indication: ADULT T-CELL LYMPHOMA/LEUKAEMIA
     Dosage: 15 MG X1 IT
     Route: 038
     Dates: start: 20090629, end: 20090629

REACTIONS (1)
  - CEREBRAL VENOUS THROMBOSIS [None]
